FAERS Safety Report 18689657 (Version 2)
Quarter: 2021Q3

REPORT INFORMATION
  Report Type: Report from Study
  Country: US (occurrence: US)
  Receive Date: 20201231
  Receipt Date: 20210710
  Transmission Date: 20211014
  Serious: Yes (Hospitalization, Other)
  Sender: FDA-Public Use
  Company Number: US-AMGEN-USACT2020209532

PATIENT
  Age: 41 Year
  Sex: Male
  Weight: 97 kg

DRUGS (2)
  1. TALIMOGENE LAHERPAREPVEC [Suspect]
     Active Substance: TALIMOGENE LAHERPAREPVEC
     Indication: METASTATIC MALIGNANT MELANOMA
     Dosage: 4 MILLILITER, CYCLICAL (21 DAYS) (CYCLE 1:4 ML (10^6) PFU/ML,FROM CYCLE 2:4 ML (10^8) PFU/ML)
     Route: 026
     Dates: start: 20200519, end: 20201016
  2. PEMBROLIZUMAB. [Concomitant]
     Active Substance: PEMBROLIZUMAB
     Indication: METASTATIC MALIGNANT MELANOMA
     Dosage: 200 MILLIGRAM, CYCLICAL (OVER 30 MINUTES ON DAY 1)
     Route: 042
     Dates: start: 20200519, end: 20201016

REACTIONS (1)
  - Tumour haemorrhage [Recovering/Resolving]

NARRATIVE: CASE EVENT DATE: 20201106
